FAERS Safety Report 5378712-5 (Version None)
Quarter: 2007Q3

REPORT INFORMATION
  Report Type: 
  Country: None (occurrence: None)
  Receive Date: 20070705
  Receipt Date: 20070628
  Transmission Date: 20080115
  Serious: Yes (Other)
  Sender: FDA-Public Use
  Company Number: B0414282A

PATIENT
  Age: 56 Year
  Sex: Male

DRUGS (5)
  1. NOGITECAN HYDROCHLORIDE [Suspect]
     Route: 042
     Dates: start: 20051115, end: 20060116
  2. CISPLATIN [Suspect]
     Route: 042
     Dates: start: 20051115, end: 20060112
  3. LENOGRASTIM [Concomitant]
     Indication: DRUG USE FOR UNKNOWN INDICATION
     Dosage: 100MCG UNKNOWN
     Route: 058
     Dates: start: 20051120, end: 20060201
  4. ONDANSETRON [Concomitant]
     Route: 065
     Dates: start: 20060112, end: 20060116
  5. DEXAMETHASONE SODIUM PHOSPHATE [Concomitant]
     Indication: DRUG USE FOR UNKNOWN INDICATION
     Route: 065
     Dates: start: 20060112, end: 20060116

REACTIONS (15)
  - ANOREXIA [None]
  - BLOOD BILIRUBIN INCREASED [None]
  - BLOOD CREATININE INCREASED [None]
  - BLOOD POTASSIUM INCREASED [None]
  - ERYTHEMA [None]
  - HAEMOGLOBIN DECREASED [None]
  - LYMPHOCYTE COUNT DECREASED [None]
  - NAUSEA [None]
  - NEUTROPHIL COUNT DECREASED [None]
  - PLATELET COUNT DECREASED [None]
  - RASH [None]
  - RED BLOOD CELL COUNT DECREASED [None]
  - VOMITING [None]
  - WEIGHT DECREASED [None]
  - WHITE BLOOD CELL COUNT DECREASED [None]
